FAERS Safety Report 5973657-1 (Version None)
Quarter: 2008Q4

REPORT INFORMATION
  Report Type: 
  Country: None (occurrence: None)
  Receive Date: 20081201
  Receipt Date: 20081119
  Transmission Date: 20090506
  Serious: Yes (Other)
  Sender: FDA-Public Use
  Company Number: US-ELI_LILLY_AND_COMPANY-US200802004888

PATIENT
  Sex: Male
  Weight: 78.005 kg

DRUGS (1)
  1. ZYPREXA [Suspect]
     Dosage: 10 MG, UNK
     Dates: start: 20000101, end: 20050101

REACTIONS (6)
  - BLOOD GLUCOSE ABNORMAL [None]
  - CEREBROVASCULAR DISORDER [None]
  - DIABETES MELLITUS [None]
  - ENDOCRINE DISORDER [None]
  - HYPERTENSION [None]
  - MYOCARDIAL INFARCTION [None]
